FAERS Safety Report 8211422-5 (Version None)
Quarter: 2012Q1

REPORT INFORMATION
  Report Type: 
  Country: None (occurrence: None)
  Receive Date: 20120315
  Receipt Date: 20120313
  Transmission Date: 20120608
  Serious: Yes (Other)
  Sender: FDA-Public Use
  Company Number: US-PFIZER INC-2012066540

PATIENT
  Sex: Male
  Weight: 67.574 kg

DRUGS (3)
  1. NORVASC [Suspect]
     Dosage: 10 MG, 1X/DAY
     Route: 048
  2. CARDURA [Suspect]
     Dosage: 2 MG, 1X/DAY
     Route: 048
  3. ACCUPRIL [Suspect]
     Dosage: 20 MG, 1X/DAY
     Route: 048

REACTIONS (1)
  - PROSTATE CANCER [None]
